FAERS Safety Report 23365730 (Version 1)
Quarter: 2024Q1

REPORT INFORMATION
  Report Type: Spontaneous
  Country: US (occurrence: US)
  Receive Date: 20240104
  Receipt Date: 20240104
  Transmission Date: 20240410
  Serious: No
  Sender: FDA-Public Use
  Company Number: US-HALEON-USCH2023066391

PATIENT

DRUGS (2)
  1. NICODERM CQ [Suspect]
     Active Substance: NICOTINE
     Indication: Product used for unknown indication
     Dosage: UNK
  2. TRANSDERM SCOP [Suspect]
     Active Substance: SCOPOLAMINE
     Indication: Product used for unknown indication
     Dosage: UNK

REACTIONS (2)
  - Wrong technique in product usage process [Unknown]
  - Product complaint [Unknown]
